FAERS Safety Report 10314853 (Version 1)
Quarter: 2014Q3

REPORT INFORMATION
  Report Type: Spontaneous
  Country: JP (occurrence: JP)
  Receive Date: 20140718
  Receipt Date: 20140718
  Transmission Date: 20150326
  Serious: No
  Sender: FDA-Public Use
  Company Number: PHHY2013JP158487

PATIENT
  Sex: Male

DRUGS (3)
  1. DASATINIB [Concomitant]
     Active Substance: DASATINIB
  2. TASIGNA [Suspect]
     Active Substance: NILOTINIB
  3. GLIVEC [Suspect]
     Active Substance: IMATINIB MESYLATE
     Indication: CHRONIC MYELOID LEUKAEMIA

REACTIONS (1)
  - Hepatic function abnormal [Recovered/Resolved]
